FAERS Safety Report 5480102-1 (Version None)
Quarter: 2007Q4

REPORT INFORMATION
  Report Type: 
  Country: None (occurrence: None)
  Receive Date: 20071009
  Receipt Date: 20070927
  Transmission Date: 20080405
  Serious: Yes (Other)
  Sender: FDA-Public Use
  Company Number: US-JNJFOC-20070801358

PATIENT
  Sex: Female
  Weight: 49.9 kg

DRUGS (7)
  1. REMICADE [Suspect]
     Indication: COLITIS ULCERATIVE
     Route: 042
  2. ULTRACET [Concomitant]
  3. MIRALAX [Concomitant]
  4. AMBIEN [Concomitant]
  5. PREDNISONE [Concomitant]
  6. ARAVA [Concomitant]
  7. PRENATAL VITAMINS [Concomitant]

REACTIONS (2)
  - ABORTION SPONTANEOUS [None]
  - DRUG EXPOSURE DURING PREGNANCY [None]
